FAERS Safety Report 4446736-8 (Version None)
Quarter: 2004Q3

REPORT INFORMATION
  Report Type: 
  Country: None (occurrence: None)
  Receive Date: 20040910
  Receipt Date: 20040826
  Transmission Date: 20050211
  Serious: No
  Sender: FDA-Public Use
  Company Number: 04H-161-0271669-00

PATIENT
  Sex: 0

DRUGS (2)
  1. LEUCOVORIN CALCIUM [Suspect]
     Indication: CHEMOTHERAPY
     Dosage: 200 MG/M2, INTRAVENOUS
     Route: 042
  2. FLUOROURACIL [Suspect]
     Indication: CHEMOTHERAPY
     Dosage: 600 MG,INTRAVENOUS
     Route: 042

REACTIONS (3)
  - ANGINA UNSTABLE [None]
  - CARDIOTOXICITY [None]
  - ELECTROCARDIOGRAM T WAVE INVERSION [None]
